FAERS Safety Report 6106005-7 (Version None)
Quarter: 2009Q1

REPORT INFORMATION
  Report Type: 
  Country: None (occurrence: None)
  Receive Date: 20090306
  Receipt Date: 20090306
  Transmission Date: 20090719
  Serious: No
  Sender: FDA-Public Use
  Company Number: None

PATIENT
  Age: 62 Year
  Sex: Male
  Weight: 72.5755 kg

DRUGS (1)
  1. METHYLPREDNISOLONE 4MG TAB [Suspect]
     Indication: UPPER RESPIRATORY TRACT INFECTION
     Dosage: 2 TABLETS BEDTIME VARIED MOUTH
     Route: 048
     Dates: start: 20090213

REACTIONS (2)
  - ANXIETY [None]
  - HEADACHE [None]
